FAERS Safety Report 7428496-1 (Version None)
Quarter: 2011Q2

REPORT INFORMATION
  Report Type: 
  Country: None (occurrence: None)
  Receive Date: 20110413
  Receipt Date: 20110323
  Transmission Date: 20111010
  Serious: Yes (Hospitalization)
  Sender: FDA-Public Use
  Company Number: IE-022334

PATIENT
  Age: 71 Year
  Sex: Male

DRUGS (1)
  1. (CHLORAMBUCIL) [Suspect]
     Indication: CHRONIC LYMPHOCYTIC LEUKAEMIA
     Dosage: 10 MG/M2 QD ORAL
     Route: 048

REACTIONS (2)
  - FEBRILE NEUTROPENIA [None]
  - RESPIRATORY TRACT INFECTION [None]
